FAERS Safety Report 5318574-5 (Version None)
Quarter: 2007Q2

REPORT INFORMATION
  Report Type: 
  Country: None (occurrence: None)
  Receive Date: 20070504
  Receipt Date: 20070504
  Transmission Date: 20071010
  Serious: Yes (Hospitalization)
  Sender: FDA-Public Use
  Company Number: None

PATIENT
  Sex: Female
  Weight: 68 kg

DRUGS (1)
  1. HDEMOCOMPLETTAN P [Suspect]
     Indication: FACTOR I DEFICIENCY
     Dosage: DOSE ADJUSTED TO 16CC FIBRINOGEN LEVELS } 75  IV
     Route: 042
     Dates: start: 20070413

REACTIONS (6)
  - JUGULAR VEIN THROMBOSIS [None]
  - LOCAL SWELLING [None]
  - MUSCULOSKELETAL DISCOMFORT [None]
  - PULMONARY EMBOLISM [None]
  - SUBCLAVIAN VEIN THROMBOSIS [None]
  - VENA CAVA THROMBOSIS [None]
